FAERS Safety Report 9906643 (Version 2)
Quarter: 2014Q2

REPORT INFORMATION
  Report Type: Other
  Country: JP (occurrence: JP)
  Receive Date: 20140218
  Receipt Date: 20140411
  Transmission Date: 20141212
  Serious: Yes (Hospitalization)
  Sender: FDA-Public Use
  Company Number: JP-NAPPMUNDI-GBR-2014-0017116

PATIENT
  Sex: Male

DRUGS (17)
  1. OXYCODONE HCL CONTROLLED RELEASE TABLETS [Suspect]
     Indication: BACK PAIN
     Dosage: 20 MG, DAILY
     Route: 048
  2. OXYCODONE HCL CONTROLLED RELEASE TABLETS [Suspect]
     Indication: ABDOMINAL PAIN LOWER
     Dosage: 120 MG, DAILY
     Route: 048
  3. OXYCODONE HCL CONTROLLED RELEASE TABLETS [Suspect]
     Indication: ARTHRALGIA
     Dosage: 180 MG, DAILY
     Route: 048
  4. OXYCODONE HCL CONTROLLED RELEASE TABLETS [Suspect]
     Indication: NEOPLASM PROGRESSION
     Dosage: 10 MG, DAILY
     Route: 048
  5. CELECOXIB [Suspect]
     Indication: BACK PAIN
     Dosage: 400 MG, DAILY
     Route: 065
  6. CELECOXIB [Suspect]
     Indication: ABDOMINAL PAIN LOWER
     Dosage: 100 MG, DAILY
     Route: 065
  7. CELECOXIB [Suspect]
     Indication: ARTHRALGIA
  8. TEGAFUR W/URACIL [Suspect]
     Indication: PRODUCT USED FOR UNKNOWN INDICATION
     Route: 048
  9. FENTANYL [Suspect]
     Indication: BACK PAIN
     Dosage: 0.9 MG, DAILY
     Route: 065
  10. FENTANYL [Suspect]
     Indication: ABDOMINAL PAIN LOWER
     Dosage: 1.8 MG, DAILY
     Route: 065
  11. FENTANYL [Suspect]
     Indication: ARTHRALGIA
  12. OXYCODONE HCL IR POWDER 0.5% [Concomitant]
     Indication: BACK PAIN
     Dosage: UNK, PRN
     Route: 065
  13. OXYCODONE HCL IR POWDER 0.5% [Concomitant]
     Indication: ABDOMINAL PAIN LOWER
  14. OXYCODONE HCL IR POWDER 0.5% [Concomitant]
     Indication: ARTHRALGIA
  15. OXYCODONE HYDROCHLORIDE [Concomitant]
     Indication: BACK PAIN
     Dosage: 10 MG, DAILY
     Route: 042
  16. OXYCODONE HYDROCHLORIDE [Concomitant]
     Indication: ABDOMINAL PAIN LOWER
     Dosage: 60 MG, DAILY
     Route: 042
  17. OXYCODONE HYDROCHLORIDE [Concomitant]
     Indication: ARTHRALGIA

REACTIONS (1)
  - Gastrointestinal obstruction [Recovering/Resolving]
